FAERS Safety Report 6705569-X (Version None)
Quarter: 2010Q2

REPORT INFORMATION
  Report Type: 
  Country: None (occurrence: None)
  Receive Date: 20100503
  Receipt Date: 20100423
  Transmission Date: 20101027
  Serious: No
  Sender: FDA-Public Use
  Company Number: US-BIOGENIDEC-2010BI014114

PATIENT
  Age: 69 Year
  Sex: Female

DRUGS (6)
  1. TYSABRI [Suspect]
     Indication: MULTIPLE SCLEROSIS
     Route: 042
     Dates: start: 20050203, end: 20050201
  2. TYSABRI [Suspect]
     Route: 042
     Dates: start: 20061016, end: 20090206
  3. TYSABRI [Suspect]
     Route: 042
     Dates: start: 20091112
  4. AVONEX [Concomitant]
     Indication: MULTIPLE SCLEROSIS
     Route: 030
  5. AVONEX [Concomitant]
     Route: 030
  6. AVONEX [Concomitant]
     Route: 030
     Dates: start: 20050610, end: 20061220

REACTIONS (1)
  - MULTIPLE SCLEROSIS RELAPSE [None]
